FAERS Safety Report 26171286 (Version 2)
Quarter: 2025Q4

REPORT INFORMATION
  Report Type: Spontaneous
  Country: CN (occurrence: CN)
  Receive Date: 20251217
  Receipt Date: 20251224
  Transmission Date: 20260118
  Serious: Yes (Life-Threatening, Hospitalization, Other)
  Sender: PFIZER
  Company Number: CN-PFIZER INC-PV202500146020

PATIENT
  Age: 69 Year
  Sex: Male

DRUGS (2)
  1. METHOTREXATE SODIUM [Suspect]
     Active Substance: METHOTREXATE SODIUM
     Indication: Psoriasis
     Dosage: 10 MG, WEEKLY
  2. FOLIC ACID [Concomitant]
     Active Substance: FOLIC ACID
     Dosage: 10 MG, WEEKLY

REACTIONS (5)
  - Toxicity to various agents [Recovered/Resolved]
  - Mucocutaneous ulceration [Recovered/Resolved]
  - Immunosuppression [Recovered/Resolved]
  - Pulmonary mucormycosis [Recovered/Resolved]
  - Myelosuppression [Recovered/Resolved]

NARRATIVE: CASE EVENT DATE: 20250101
